FAERS Safety Report 17442057 (Version 1)
Quarter: 2020Q1

REPORT INFORMATION
  Report Type: Spontaneous
  Country: US (occurrence: US)
  Receive Date: 20200220
  Receipt Date: 20200220
  Transmission Date: 20200409
  Serious: Yes (Hospitalization, Other)
  Sender: FDA-Public Use
  Company Number: US-NALPROPION PHARMACEUTICALS INC.-2020-009570

PATIENT
  Sex: Female

DRUGS (4)
  1. CONTRAVE [Suspect]
     Active Substance: BUPROPION HYDROCHLORIDE\NALTREXONE HYDROCHLORIDE
     Dosage: DECREASED DOSE TO TWO TABLETS AM, ONE TABLET PM
     Route: 048
     Dates: start: 201910, end: 202001
  2. CONTRAVE [Suspect]
     Active Substance: BUPROPION HYDROCHLORIDE\NALTREXONE HYDROCHLORIDE
     Indication: WEIGHT CONTROL
     Dosage: ONE TABLET DAILY
     Route: 048
     Dates: start: 201811
  3. CONTRAVE [Suspect]
     Active Substance: BUPROPION HYDROCHLORIDE\NALTREXONE HYDROCHLORIDE
     Dosage: REACHED AFTER A MONTH TO TWO TABLETS AM, AND TWO TABLETS PM
     Route: 048
     Dates: start: 201812
  4. CONTRAVE [Suspect]
     Active Substance: BUPROPION HYDROCHLORIDE\NALTREXONE HYDROCHLORIDE
     Dosage: ONE TABLET AM, ONE TABLET PM
     Route: 048
     Dates: start: 202001, end: 20200104

REACTIONS (3)
  - Anal fistula [Unknown]
  - Anal abscess [Unknown]
  - Intentional underdose [Unknown]

NARRATIVE: CASE EVENT DATE: 201910
